FAERS Safety Report 19808375 (Version 1)
Quarter: 2021Q3

REPORT INFORMATION
  Report Type: Spontaneous
  Country: DE (occurrence: DE)
  Receive Date: 20210909
  Receipt Date: 20210909
  Transmission Date: 20211014
  Serious: Yes (Hospitalization)
  Sender: FDA-Public Use
  Company Number: DE-COVIS PHARMA GMBH-2021COV23827

PATIENT
  Age: 6 Month

DRUGS (8)
  1. PRILOSEC [Suspect]
     Active Substance: OMEPRAZOLE MAGNESIUM
     Indication: PRODUCT USED FOR UNKNOWN INDICATION
     Route: 065
  2. TRAMETINIB [Suspect]
     Active Substance: TRAMETINIB
     Indication: CARDIAC FAILURE
  3. PROPRANOLOL [Suspect]
     Active Substance: PROPRANOLOL HYDROCHLORIDE
     Indication: PRODUCT USED FOR UNKNOWN INDICATION
  4. FUROSEMIDE. [Suspect]
     Active Substance: FUROSEMIDE
     Indication: PRODUCT USED FOR UNKNOWN INDICATION
  5. TRAMETINIB [Suspect]
     Active Substance: TRAMETINIB
     Indication: CARDIAC HYPERTROPHY
     Dosage: .02 MG/KG DAILY / DOSE TEXT: UNK, (25% DOSE REDUCTION)
  6. SPIRONOLACTONE. [Suspect]
     Active Substance: SPIRONOLACTONE
     Indication: PRODUCT USED FOR UNKNOWN INDICATION
  7. TRAMETINIB [Suspect]
     Active Substance: TRAMETINIB
     Indication: ACQUIRED LEFT VENTRICLE OUTFLOW TRACT OBSTRUCTION
  8. TRAMETINIB [Suspect]
     Active Substance: TRAMETINIB
     Indication: LYMPHATIC OBSTRUCTION

REACTIONS (2)
  - Dehydration [Recovered/Resolved]
  - Hypernatraemia [Recovered/Resolved]
